FAERS Safety Report 15478414 (Version 2)
Quarter: 2018Q4

REPORT INFORMATION
  Report Type: Spontaneous
  Country: US (occurrence: US)
  Receive Date: 20181009
  Receipt Date: 20181119
  Transmission Date: 20190205
  Serious: Yes (Other)
  Sender: FDA-Public Use
  Company Number: US-ASTRAZENECA-2018SF28745

PATIENT
  Age: 68 Year
  Sex: Female
  Weight: 77.1 kg

DRUGS (12)
  1. METFORMIN [Concomitant]
     Active Substance: METFORMIN HYDROCHLORIDE
     Indication: DIABETES MELLITUS
     Route: 048
     Dates: start: 2015
  2. METOPROLOL TARTRATE. [Suspect]
     Active Substance: METOPROLOL TARTRATE
     Indication: CARDIAC DISORDER
     Route: 048
  3. SYMBICORT [Suspect]
     Active Substance: BUDESONIDE\FORMOTEROL FUMARATE DIHYDRATE
     Indication: CHRONIC OBSTRUCTIVE PULMONARY DISEASE
     Dosage: 80/4.5 UG 1 PUFF TWICE DAILY
     Route: 055
  4. TICAGRELOR. [Suspect]
     Active Substance: TICAGRELOR
     Indication: ARTERIAL DISORDER
     Route: 048
     Dates: start: 2015
  5. TRULICITY [Concomitant]
     Active Substance: DULAGLUTIDE
     Indication: DIABETES MELLITUS
     Route: 058
     Dates: start: 2016
  6. AMLODIPINE VALSARTAN [Concomitant]
     Active Substance: AMLODIPINE BESYLATE\VALSARTAN
     Indication: CARDIAC DISORDER
     Route: 048
     Dates: start: 2000
  7. PRAVASTATIN. [Concomitant]
     Active Substance: PRAVASTATIN
     Indication: CARDIAC DISORDER
     Route: 048
     Dates: start: 2000
  8. NITROGLYCERIN. [Concomitant]
     Active Substance: NITROGLYCERIN
     Indication: CARDIAC DISORDER
     Dosage: AS REQUIRED
     Route: 060
     Dates: start: 2000
  9. SYMBICORT [Suspect]
     Active Substance: BUDESONIDE\FORMOTEROL FUMARATE DIHYDRATE
     Indication: CHRONIC OBSTRUCTIVE PULMONARY DISEASE
     Dosage: 80/4.5 UG 2 PUFF TWICE DAILY
     Route: 055
     Dates: start: 20180921
  10. METFORMIN [Concomitant]
     Active Substance: METFORMIN HYDROCHLORIDE
     Indication: DIABETES MELLITUS
     Route: 048
     Dates: start: 2015
  11. ASPIRIN. [Concomitant]
     Active Substance: ASPIRIN
     Indication: CARDIAC DISORDER
     Route: 048
     Dates: start: 2000
  12. LEVAMIR [Concomitant]
     Indication: DIABETES MELLITUS
     Route: 058

REACTIONS (9)
  - Off label use [Unknown]
  - Pharyngeal ulceration [Recovering/Resolving]
  - Deafness [Recovered/Resolved]
  - Mouth ulceration [Recovering/Resolving]
  - Diabetes mellitus [Unknown]
  - Viral infection [Recovered/Resolved]
  - Intentional product misuse [Unknown]
  - Blood glucose increased [Unknown]
  - Sleep apnoea syndrome [Unknown]

NARRATIVE: CASE EVENT DATE: 2015
